FAERS Safety Report 9349020 (Version 2)
Quarter: 2013Q3

REPORT INFORMATION
  Report Type: Spontaneous
  Country: AU (occurrence: AU)
  Receive Date: 20130614
  Receipt Date: 20130808
  Transmission Date: 20140515
  Serious: Yes (Hospitalization, Other)
  Sender: FDA-Public Use
  Company Number: AU-ALEXION PHARMACEUTICALS INC.-A201301357

PATIENT
  Age: 73 Year
  Sex: Female

DRUGS (4)
  1. SOLIRIS 300MG [Suspect]
     Indication: PAROXYSMAL NOCTURNAL HAEMOGLOBINURIA
     Dosage: 900 MG, Q2W
     Route: 042
     Dates: start: 201105
  2. EXJADE [Suspect]
     Indication: DIURETIC THERAPY
     Dosage: UNK
     Dates: end: 20130724
  3. WARFARIN [Concomitant]
     Dosage: UNK
  4. PREDNISONE [Concomitant]
     Dosage: UNK

REACTIONS (6)
  - Nausea [Recovering/Resolving]
  - Decreased appetite [Recovering/Resolving]
  - Haemorrhage [Unknown]
  - Local swelling [Recovered/Resolved]
  - Rash [Unknown]
  - Haemoglobin decreased [Unknown]
